FAERS Safety Report 8359886-0 (Version None)
Quarter: 2012Q2

REPORT INFORMATION
  Report Type: 
  Country: None (occurrence: None)
  Receive Date: 20120515
  Receipt Date: 20120509
  Transmission Date: 20120825
  Serious: Yes (Life-Threatening, Hospitalization, Disabling, Other)
  Sender: FDA-Public Use
  Company Number: FR-ASTELLAS-2012EU002869

PATIENT
  Sex: Female
  Weight: 65 kg

DRUGS (1)
  1. PROTOPIC [Suspect]
     Indication: VITILIGO
     Dosage: UNK
     Route: 061
     Dates: start: 20091026

REACTIONS (2)
  - ACUTE MYELOID LEUKAEMIA [None]
  - OFF LABEL USE [None]
